FAERS Safety Report 6399462-2 (Version None)
Quarter: 2009Q4

REPORT INFORMATION
  Report Type: 
  Country: None (occurrence: None)
  Receive Date: 20091014
  Receipt Date: 20091005
  Transmission Date: 20100525
  Serious: Yes (Hospitalization, Other)
  Sender: FDA-Public Use
  Company Number: US-AMGEN-QUU367677

PATIENT
  Sex: Female

DRUGS (1)
  1. ENBREL [Suspect]
     Indication: RHEUMATOID ARTHRITIS
     Route: 058
     Dates: start: 19991201

REACTIONS (9)
  - ACCIDENT [None]
  - ARTHRALGIA [None]
  - GALLBLADDER DISORDER [None]
  - JOINT SWELLING [None]
  - NAUSEA [None]
  - PLEURAL EFFUSION [None]
  - SPLENIC INJURY [None]
  - VOMITING [None]
  - WEIGHT DECREASED [None]
